FAERS Safety Report 20264469 (Version 1)
Quarter: 2021Q4

REPORT INFORMATION
  Report Type: Spontaneous
  Country: US (occurrence: None)
  Receive Date: 20211231
  Receipt Date: 20211231
  Transmission Date: 20220303
  Serious: No
  Sender: FDA-Public Use
  Company Number: 2021A851774

PATIENT
  Age: 73 Year
  Sex: Male
  Weight: 104.3 kg

DRUGS (1)
  1. BYDUREON BCISE [Suspect]
     Active Substance: EXENATIDE
     Indication: Type 2 diabetes mellitus
     Dosage: 2MG/ML ONCE A WEEK
     Route: 058

REACTIONS (7)
  - Rash [Unknown]
  - Insomnia [Unknown]
  - Food allergy [Unknown]
  - Pruritus [Unknown]
  - Head discomfort [Unknown]
  - Hypersensitivity [Unknown]
  - Weight decreased [Unknown]
